FAERS Safety Report 18415963 (Version 1)
Quarter: 2020Q4

REPORT INFORMATION
  Report Type: Spontaneous
  Country: US (occurrence: US)
  Receive Date: 20201022
  Receipt Date: 20201022
  Transmission Date: 20210114
  Serious: Yes (Death, Other)
  Sender: FDA-Public Use
  Company Number: US-PURDUE-USA-2020-0170447

PATIENT
  Sex: Male

DRUGS (3)
  1. PERCOCET                           /00446701/ [Suspect]
     Active Substance: ACETAMINOPHEN\OXYCODONE HYDROCHLORIDE\OXYCODONE TEREPHTHALATE
     Indication: BREAKTHROUGH PAIN
     Dosage: 7.5/325 MG, Q4H
     Route: 048
  2. OXYCODONE/ ACETAMINOPHEN TABLETS [Suspect]
     Active Substance: ACETAMINOPHEN\OXYCODONE HYDROCHLORIDE
     Indication: PRODUCT USED FOR UNKNOWN INDICATION
     Dosage: UNKNOWN
     Route: 048
  3. OXYCONTIN [Suspect]
     Active Substance: OXYCODONE HYDROCHLORIDE
     Indication: PRODUCT USED FOR UNKNOWN INDICATION
     Dosage: 120 MG, TID
     Route: 048
     Dates: start: 20060825, end: 20190216

REACTIONS (25)
  - Death [Fatal]
  - Rheumatoid arthritis [Unknown]
  - Decreased appetite [Unknown]
  - Fatigue [Unknown]
  - Constipation [Unknown]
  - Libido decreased [Unknown]
  - Intestinal obstruction [Unknown]
  - Insomnia [Unknown]
  - White blood cell count decreased [Unknown]
  - Hospitalisation [Unknown]
  - Agitation [Unknown]
  - Arthralgia [Unknown]
  - Gastrointestinal hypomotility [Unknown]
  - Dyspepsia [Unknown]
  - Somnolence [Unknown]
  - Nausea [Unknown]
  - Asthenia [Unknown]
  - Dizziness [Unknown]
  - Arthritis [Unknown]
  - Anxiety [Unknown]
  - Drug dependence [Unknown]
  - Erectile dysfunction [Unknown]
  - Anaemia [Unknown]
  - Headache [Unknown]
  - Haemorrhoids [Unknown]

NARRATIVE: CASE EVENT DATE: 20190316
